FAERS Safety Report 15708515 (Version 2)
Quarter: 2019Q3

REPORT INFORMATION
  Report Type: Report from Study
  Country: US (occurrence: US)
  Receive Date: 20181211
  Receipt Date: 20190703
  Transmission Date: 20191004
  Serious: No
  Sender: FDA-Public Use
  Company Number: US-B.I. PHARMACEUTICALS,INC./RIDGEFIELD-2018-BI-058526

PATIENT
  Age: 77 Year
  Sex: Female

DRUGS (3)
  1. OFEV [Suspect]
     Active Substance: NINTEDANIB
     Indication: IDIOPATHIC PULMONARY FIBROSIS
     Dosage: BID;  FORM STRENGTH: 150 MG; FORMULATION: CAPSULE, ACTION(S) TAKEN WITH PRODUCT: DRUG REDUCED
     Route: 048
     Dates: start: 201610, end: 20180926
  2. OFEV [Suspect]
     Active Substance: NINTEDANIB
     Dosage: STRENGTH: 100 MG; FORMULAT: CAPSULE? ADMINISTRATION CORRECT? NR()ACTION(S) TAKEN : DRUG WITHDRAWN
     Route: 048
     Dates: start: 20180926, end: 20181030
  3. OFEV [Suspect]
     Active Substance: NINTEDANIB
     Route: 048
     Dates: start: 20161006

REACTIONS (4)
  - Cough [Unknown]
  - Arthritis [Unknown]
  - Oxygen therapy [Unknown]
  - Diarrhoea [Unknown]

NARRATIVE: CASE EVENT DATE: 20181030
